FAERS Safety Report 5239513-1 (Version None)
Quarter: 2007Q1

REPORT INFORMATION
  Report Type: 
  Country: None (occurrence: None)
  Receive Date: 20070212
  Receipt Date: 20070130
  Transmission Date: 20070707
  Serious: Yes (Life-Threatening)
  Sender: FDA-Public Use
  Company Number: GXKR2007ES01276

PATIENT
  Age: 69 Year
  Sex: Male

DRUGS (3)
  1. METOCLOPRAMIDE [Suspect]
     Indication: VOMITING
     Dosage: 3 X 10 MG, IV BOLUS
     Route: 040
  2. PREDNISONE TAB [Concomitant]
  3. PYRIDOSTIGMINE (PYRIDOSTIGMINE) [Concomitant]

REACTIONS (2)
  - ATRIAL FIBRILLATION [None]
  - ATRIOVENTRICULAR BLOCK COMPLETE [None]
